FAERS Safety Report 4635023-0 (Version None)
Quarter: 2005Q2

REPORT INFORMATION
  Report Type: 
  Country: None (occurrence: None)
  Receive Date: 20050414
  Receipt Date: 20050401
  Transmission Date: 20051028
  Serious: Yes (Hospitalization)
  Sender: FDA-Public Use
  Company Number: IT-JNJFOC-20050401367

PATIENT
  Age: 80 Year
  Sex: Male

DRUGS (2)
  1. REMICADE [Suspect]
     Route: 042
  2. METHYLPREDNISONE [Concomitant]

REACTIONS (3)
  - CANDIDA SEPSIS [None]
  - PYREXIA [None]
  - STAPHYLOCOCCAL INFECTION [None]
